FAERS Safety Report 16392945 (Version 1)
Quarter: 2019Q2

REPORT INFORMATION
  Report Type: Spontaneous
  Country: PT (occurrence: PT)
  Receive Date: 20190605
  Receipt Date: 20190605
  Transmission Date: 20190711
  Serious: Yes (Life-Threatening, Other)
  Sender: FDA-Public Use
  Company Number: PT-FRESENIUS KABI-FK201906217

PATIENT
  Age: 52 Year
  Sex: Male

DRUGS (7)
  1. THIAMAZOLE [Concomitant]
     Active Substance: METHIMAZOLE
     Indication: HYPERTHYROIDISM
     Route: 065
  2. METHYLPREDNISOLONE. [Concomitant]
     Active Substance: METHYLPREDNISOLONE
     Indication: THYROTOXIC CRISIS
     Route: 042
  3. IODINE. [Concomitant]
     Active Substance: IODINE
     Indication: THYROTOXIC CRISIS
     Route: 065
  4. PROPRANOLOL HYDROCHLORIDE (MANUFACTURER UNKNOWN) [Suspect]
     Active Substance: PROPRANOLOL HYDROCHLORIDE
     Indication: HYPERTHYROIDISM
     Route: 065
  5. PROPYLTHIOURACIL. [Concomitant]
     Active Substance: PROPYLTHIOURACIL
     Indication: THYROTOXIC CRISIS
     Route: 065
  6. COLESTYRAMINE [Concomitant]
     Active Substance: CHOLESTYRAMINE
     Indication: THYROTOXIC CRISIS
     Route: 065
  7. HYDROCORTISONE. [Concomitant]
     Active Substance: HYDROCORTISONE
     Indication: THYROTOXIC CRISIS
     Route: 065

REACTIONS (2)
  - Bradycardia [Unknown]
  - Product use in unapproved indication [Unknown]
